FAERS Safety Report 10060986 (Version 2)
Quarter: 2014Q2

REPORT INFORMATION
  Report Type: Spontaneous
  Country: CZ (occurrence: CZ)
  Receive Date: 20140405
  Receipt Date: 20140417
  Transmission Date: 20141212
  Serious: Yes (Death, Hospitalization)
  Sender: FDA-Public Use
  Company Number: CZ-ROCHE-1378372

PATIENT
  Age: 63 Year
  Sex: Male

DRUGS (3)
  1. AVASTIN [Suspect]
     Indication: RECTAL CANCER
     Route: 042
     Dates: start: 20130808, end: 20140130
  2. XELODA [Concomitant]
     Indication: RECTAL CANCER
     Route: 048
     Dates: start: 20140107, end: 20140211
  3. OXALIPLATIN [Concomitant]
     Indication: RECTAL CANCER
     Route: 042
     Dates: start: 20140107, end: 20140128

REACTIONS (7)
  - Gastrointestinal perforation [Fatal]
  - Acute respiratory failure [Fatal]
  - Sepsis [Fatal]
  - Pulmonary embolism [Fatal]
  - Multi-organ failure [Fatal]
  - Diarrhoea [Not Recovered/Not Resolved]
  - Pyrexia [Not Recovered/Not Resolved]
